FAERS Safety Report 6693932-5 (Version None)
Quarter: 2010Q2

REPORT INFORMATION
  Report Type: 
  Country: None (occurrence: None)
  Receive Date: 20100423
  Receipt Date: 20100412
  Transmission Date: 20101027
  Serious: Yes (Other)
  Sender: FDA-Public Use
  Company Number: GB-PFIZER INC-2010046189

PATIENT
  Age: 75 Year
  Sex: Female

DRUGS (1)
  1. SALAZOPYRIN [Suspect]
     Indication: MUSCULOSKELETAL PAIN

REACTIONS (2)
  - BREAST CANCER [None]
  - GASTRIC CANCER [None]
